FAERS Safety Report 25938515 (Version 3)
Quarter: 2025Q4

REPORT INFORMATION
  Report Type: Report from Study
  Country: EG (occurrence: EG)
  Receive Date: 20251019
  Receipt Date: 20251218
  Transmission Date: 20260117
  Serious: Yes (Hospitalization, Other)
  Sender: SANOFI AVENTIS
  Company Number: EG-SA-2025SA309867

PATIENT
  Age: 45 Year
  Sex: Female

DRUGS (5)
  1. INSULIN GLARGINE [Suspect]
     Active Substance: INSULIN GLARGINE
     Indication: Diabetes mellitus
     Dosage: 30 IU, QD
     Route: 058
     Dates: start: 202508
  2. INSULIN GLARGINE [Suspect]
     Active Substance: INSULIN GLARGINE
     Indication: Diabetes mellitus
     Dosage: 30 IU, QD; 12 OR 13 YEARS AGO
     Route: 058
  3. GLIMEPIRIDE\PIOGLITAZONE HYDROCHLORIDE [Suspect]
     Active Substance: GLIMEPIRIDE\PIOGLITAZONE HYDROCHLORIDE
     Indication: Type 1 diabetes mellitus
     Dosage: 1 DF, BID
     Route: 048
  4. VILDAGLIPTIN [Suspect]
     Active Substance: VILDAGLIPTIN
     Indication: Type 1 diabetes mellitus
     Dosage: 2 DF, BID
     Route: 048
  5. TOUJEO [Concomitant]
     Active Substance: INSULIN GLARGINE
     Indication: Diabetes mellitus
     Dosage: 30 IU, QD
     Dates: start: 202512

REACTIONS (11)
  - Diabetic coma [Recovered/Resolved]
  - Hyperglycaemia [Recovered/Resolved]
  - Product dose omission issue [Recovered/Resolved]
  - Injection site pain [Recovered/Resolved]
  - Injection site bruising [Recovered/Resolved]
  - Hypercholesterolaemia [Not Recovered/Not Resolved]
  - Polyuria [Recovered/Resolved]
  - Milia [Not Recovered/Not Resolved]
  - Glycosylated haemoglobin increased [Unknown]
  - Ketonuria [Recovered/Resolved]
  - Drug administered in wrong device [Unknown]

NARRATIVE: CASE EVENT DATE: 20240101
